FAERS Safety Report 17449582 (Version 1)
Quarter: 2020Q1

REPORT INFORMATION
  Report Type: Spontaneous
  Country: ES (occurrence: ES)
  Receive Date: 20200224
  Receipt Date: 20200224
  Transmission Date: 20200409
  Serious: Yes (Hospitalization)
  Sender: FDA-Public Use
  Company Number: ES-ALVOGEN-2020-ALVOGEN-107652

PATIENT
  Sex: Female

DRUGS (1)
  1. DOXORUBICIN [Suspect]
     Active Substance: DOXORUBICIN
     Indication: DIFFUSE LARGE B-CELL LYMPHOMA
     Dosage: TOTAL 5 CYCLES
     Dates: start: 201607, end: 201701

REACTIONS (3)
  - Right ventricular enlargement [Recovering/Resolving]
  - Right ventricular dysfunction [Recovering/Resolving]
  - Tricuspid valve incompetence [Recovering/Resolving]
